FAERS Safety Report 7814700-4 (Version None)
Quarter: 2011Q4

REPORT INFORMATION
  Report Type: 
  Country: None (occurrence: None)
  Receive Date: 20111013
  Receipt Date: 20111013
  Transmission Date: 20120403
  Serious: Yes (Other)
  Sender: FDA-Public Use
  Company Number: None

PATIENT
  Age: 37 Year
  Sex: Female

DRUGS (1)
  1. SUBOXONE [Suspect]
     Dosage: 1 FILM BID SUBLINGUALLY
     Route: 060
     Dates: start: 20110920, end: 20110922

REACTIONS (5)
  - GLOSSODYNIA [None]
  - OEDEMA MOUTH [None]
  - SWOLLEN TONGUE [None]
  - ORAL DISCOMFORT [None]
  - MUSCLE TIGHTNESS [None]
